FAERS Safety Report 20749564 (Version 1)
Quarter: 2022Q2

REPORT INFORMATION
  Report Type: Spontaneous
  Country: US (occurrence: None)
  Receive Date: 20220425
  Receipt Date: 20220425
  Transmission Date: 20220721
  Serious: Yes (Other)
  Sender: FDA-Public Use
  Company Number: None

PATIENT
  Age: 58 Year
  Sex: Female
  Weight: 87.75 kg

DRUGS (37)
  1. CHLORHEXIDINE GLUCONATE [Suspect]
     Active Substance: CHLORHEXIDINE GLUCONATE
     Indication: Antibiotic prophylaxis
     Dosage: OTHER FREQUENCY : PRIOR TO SURGERY;?
     Route: 061
     Dates: start: 20190103, end: 20190103
  2. CLONAZEPAM [Concomitant]
     Active Substance: CLONAZEPAM
  3. ESTRADIOL [Concomitant]
     Active Substance: ESTRADIOL
  4. GABAPENTIN [Concomitant]
     Active Substance: GABAPENTIN
  5. KEPPRA [Concomitant]
     Active Substance: LEVETIRACETAM
  6. liptor (atorvastatin calcium) [Concomitant]
  7. SEROQUEL [Concomitant]
  8. EFFEXOR XR [Concomitant]
     Active Substance: VENLAFAXINE HYDROCHLORIDE
  9. allertec (cetrizine hci) [Concomitant]
  10. ASPIRIN [Concomitant]
     Active Substance: ASPIRIN
  11. THIAMINE [Concomitant]
     Active Substance: THIAMINE
  12. THIAMINE [Concomitant]
     Active Substance: THIAMINE
  13. RIBOFLAVIN [Concomitant]
     Active Substance: RIBOFLAVIN
  14. NIACIN [Concomitant]
     Active Substance: NIACIN
  15. VITAMIN B6 [Concomitant]
     Active Substance: PYRIDOXINE HYDROCHLORIDE
  16. FOLIC ACID [Concomitant]
     Active Substance: FOLIC ACID
  17. BIOTIN [Concomitant]
     Active Substance: BIOTIN
  18. PANTOTHENIC [Concomitant]
  19. calcium (diabasic calcium phosphate) [Concomitant]
  20. VITAMIN D3 [Concomitant]
     Active Substance: CHOLECALCIFEROL
  21. MINERALS\VITAMINS [Concomitant]
     Active Substance: MINERALS\VITAMINS
  22. multivitamin [Concomitant]
  23. mutlivitamin citracal (d, cal, zinc, copper, mang, sodium) [Concomitant]
  24. VITAMIN D [Concomitant]
     Active Substance: VITAMIN D NOS
  25. CALCIUM CITRATE [Concomitant]
  26. manganese sodium [Concomitant]
  27. fish oil (omega-3 + other fatty acids) [Concomitant]
  28. GINKGO [Concomitant]
     Active Substance: GINKGO
  29. BILOBA [Concomitant]
  30. extract [Concomitant]
  31. VINPOCETINE [Concomitant]
     Active Substance: VINPOCETINE
  32. iron (w/vitamin c) [Concomitant]
  33. tumeric [Concomitant]
  34. ashwaganda [Concomitant]
  35. clycinate [Concomitant]
  36. trunature [Concomitant]
  37. VITAMIN C [Concomitant]
     Active Substance: ASCORBIC ACID

REACTIONS (1)
  - Generalised tonic-clonic seizure [None]

NARRATIVE: CASE EVENT DATE: 20190103
